FAERS Safety Report 11394136 (Version 3)
Quarter: 2015Q4

REPORT INFORMATION
  Report Type: Report from Study
  Country: US (occurrence: US)
  Receive Date: 20150819
  Receipt Date: 20151009
  Transmission Date: 20160304
  Serious: No
  Sender: FDA-Public Use
  Company Number: PHEH2015US015893

PATIENT
  Age: 52 Year
  Sex: Female
  Weight: 81.63 kg

DRUGS (1)
  1. GILENYA [Suspect]
     Active Substance: FINGOLIMOD HYDROCHLORIDE
     Indication: RELAPSING-REMITTING MULTIPLE SCLEROSIS
     Dosage: 0.5 MG, QD
     Route: 048
     Dates: start: 20150812

REACTIONS (20)
  - Diarrhoea [Recovering/Resolving]
  - Limb discomfort [Unknown]
  - Dizziness [Recovering/Resolving]
  - Muscle twitching [Not Recovered/Not Resolved]
  - Feeling abnormal [Not Recovered/Not Resolved]
  - Central nervous system lesion [Not Recovered/Not Resolved]
  - Gait disturbance [Not Recovered/Not Resolved]
  - Coordination abnormal [Not Recovered/Not Resolved]
  - Vomiting [Recovering/Resolving]
  - Fear [Unknown]
  - Headache [Not Recovered/Not Resolved]
  - Drug ineffective [Unknown]
  - Weight increased [Not Recovered/Not Resolved]
  - Malaise [Recovering/Resolving]
  - Fall [Not Recovered/Not Resolved]
  - Muscular weakness [Not Recovered/Not Resolved]
  - Head discomfort [Not Recovered/Not Resolved]
  - Dysstasia [Not Recovered/Not Resolved]
  - Heart rate decreased [Recovered/Resolved]
  - Crying [Unknown]

NARRATIVE: CASE EVENT DATE: 20150812
